FAERS Safety Report 8814829 (Version 1)
Quarter: 2012Q4

REPORT INFORMATION
  Report Type: 
  Country: BR (occurrence: BR)
  Receive Date: 20120928
  Receipt Date: 20120928
  Transmission Date: 20130627
  Serious: Yes (Hospitalization)
  Sender: FDA-Public Use
  Company Number: BR-PFIZER INC-2012239135

PATIENT
  Age: 83 Year
  Sex: Female

DRUGS (2)
  1. PANTOZOL [Suspect]
     Dosage: 40 mg, 2x/day
     Route: 048
  2. MOTILIUM [Concomitant]
     Dosage: 10 mg, 2x/day

REACTIONS (1)
  - Gastrointestinal ulcer [Unknown]
